FAERS Safety Report 4792795-2 (Version None)
Quarter: 2005Q4

REPORT INFORMATION
  Report Type: 
  Country: None (occurrence: None)
  Receive Date: 20051010
  Receipt Date: 20050629
  Transmission Date: 20060501
  Serious: Yes (Disabling)
  Sender: FDA-Public Use
  Company Number: PHEH2005US07317

PATIENT
  Age: 32 Year
  Sex: Male

DRUGS (3)
  1. GLEEVEC [Suspect]
     Indication: CHRONIC MYELOID LEUKAEMIA
     Dosage: 600 MG, QD
     Route: 048
     Dates: start: 20010901
  2. INTERFERON [Concomitant]
     Route: 058
  3. CYMBALTA [Concomitant]
     Dates: start: 20040101

REACTIONS (4)
  - GAIT DISTURBANCE [None]
  - HYPERREFLEXIA [None]
  - MUSCLE SPASTICITY [None]
  - MUSCULOSKELETAL STIFFNESS [None]
